FAERS Safety Report 22082375 (Version 1)
Quarter: 2023Q1

REPORT INFORMATION
  Report Type: Spontaneous
  Country: US (occurrence: US)
  Receive Date: 20230310
  Receipt Date: 20230310
  Transmission Date: 20230418
  Serious: No
  Sender: FDA-Public Use
  Company Number: US-Ipsen Biopharmaceuticals, Inc.-2023-05425

PATIENT
  Age: 42 Year
  Sex: Female

DRUGS (1)
  1. DYSPORT [Suspect]
     Active Substance: ABOBOTULINUMTOXINA
     Indication: Product used for unknown indication
     Dates: start: 20230224

REACTIONS (5)
  - Headache [Unknown]
  - Migraine [Unknown]
  - Nausea [Unknown]
  - Visual impairment [Unknown]
  - Off label use [Unknown]

NARRATIVE: CASE EVENT DATE: 20230301
